FAERS Safety Report 8768589 (Version 1)
Quarter: 2012Q4

REPORT INFORMATION
  Report Type: 
  Country: DE (occurrence: DE)
  Receive Date: 20120906
  Receipt Date: 20120906
  Transmission Date: 20130627
  Serious: Yes (Hospitalization)
  Sender: FDA-Public Use
  Company Number: DE-UCBSA-046293

PATIENT
  Age: 51 Year
  Sex: Male
  Weight: 89.5 kg

DRUGS (4)
  1. KEPPRA [Suspect]
     Indication: EPILEPSY
     Route: 048
     Dates: start: 201001
  2. KEPPRA [Suspect]
     Indication: EPILEPSY
     Dosage: DAILY DOSE: 750MG
  3. KEPPRA [Suspect]
     Indication: EPILEPSY
     Dosage: DAILY DOSE:500MG
     Dates: end: 201208
  4. LAMOTRIGINE [Concomitant]

REACTIONS (10)
  - Cognitive disorder [Unknown]
  - Impaired work ability [Unknown]
  - Epilepsy [Unknown]
  - Abdominal pain [Unknown]
  - Mood swings [Unknown]
  - Memory impairment [Not Recovered/Not Resolved]
  - Frequent bowel movements [Unknown]
  - Disturbance in attention [Not Recovered/Not Resolved]
  - Burnout syndrome [Unknown]
  - Gastrointestinal pain [Not Recovered/Not Resolved]
